FAERS Safety Report 12398840 (Version 2)
Quarter: 2016Q2

REPORT INFORMATION
  Report Type: Spontaneous
  Country: FR (occurrence: FR)
  Receive Date: 20160524
  Receipt Date: 20160608
  Transmission Date: 20160815
  Serious: Yes (Hospitalization)
  Sender: FDA-Public Use
  Company Number: FR-ELI_LILLY_AND_COMPANY-FR201605007143

PATIENT
  Age: 34 Year
  Sex: Female

DRUGS (5)
  1. CLOPIXOL                           /00876702/ [Suspect]
     Active Substance: ZUCLOPENTHIXOL ACETATE
     Indication: BIPOLAR DISORDER
     Dosage: 25 MG, QD
     Route: 048
     Dates: start: 20160301, end: 20160426
  2. VALIUM [Concomitant]
     Active Substance: DIAZEPAM
     Dosage: 05 MG, UNKNOWN
     Route: 048
     Dates: start: 20140101, end: 20160426
  3. ZYPADHERA [Suspect]
     Active Substance: OLANZAPINE PAMOATE
     Indication: BIPOLAR DISORDER
     Dosage: 1 DF, 2/M
     Route: 030
     Dates: start: 20160301
  4. CARBAMAZEPINE. [Suspect]
     Active Substance: CARBAMAZEPINE
     Indication: BIPOLAR DISORDER
     Dosage: 400 MG, QD
     Route: 048
     Dates: start: 20160301, end: 20160426
  5. LEPTICUR [Concomitant]
     Active Substance: TROPATEPINE HYDROCHLORIDE
     Dosage: 10 MG, UNKNOWN
     Route: 048
     Dates: start: 20030101, end: 20160424

REACTIONS (4)
  - Gamma-glutamyltransferase increased [Unknown]
  - Toxic skin eruption [Recovered/Resolved]
  - Drug dose omission [Unknown]
  - Eosinophilia [Recovered/Resolved]

NARRATIVE: CASE EVENT DATE: 201604
